FAERS Safety Report 8771771 (Version 2)
Quarter: 2013Q4

REPORT INFORMATION
  Report Type: Spontaneous
  Country: US (occurrence: US)
  Receive Date: 20120906
  Receipt Date: 20131101
  Transmission Date: 20140711
  Serious: No
  Sender: FDA-Public Use
  Company Number: US-009507513-1209USA002183

PATIENT
  Sex: Female

DRUGS (2)
  1. DR. SCHOLLS CORN REMOVERS [Suspect]
     Indication: PRODUCT USED FOR UNKNOWN INDICATION
     Dosage: UNK, UNKNOWN
     Route: 061
  2. DR. SCHOLLS CORN REMOVERS [Suspect]
     Dosage: UNK

REACTIONS (1)
  - Therapeutic product ineffective [Unknown]
